FAERS Safety Report 25688990 (Version 1)
Quarter: 2025Q3

REPORT INFORMATION
  Report Type: Spontaneous
  Country: EU (occurrence: EU)
  Receive Date: 20250818
  Receipt Date: 20250818
  Transmission Date: 20251020
  Serious: Yes (Hospitalization, Other)
  Sender: TAKEDA
  Company Number: None

PATIENT
  Age: 75 Year
  Sex: Male
  Weight: 67.5 kg

DRUGS (1)
  1. FRUZAQLA [Suspect]
     Active Substance: FRUQUINTINIB
     Indication: Adenocarcinoma of colon
     Dosage: 21 DOSAGE FORM, MONTHLY
     Dates: start: 20250110, end: 20250304

REACTIONS (2)
  - Hypothyroidism [Recovered/Resolved with Sequelae]
  - Sinus tachycardia [Recovered/Resolved with Sequelae]

NARRATIVE: CASE EVENT DATE: 20250125
